FAERS Safety Report 7655713-5 (Version None)
Quarter: 2011Q3

REPORT INFORMATION
  Report Type: 
  Country: None (occurrence: None)
  Receive Date: 20110804
  Receipt Date: 20110726
  Transmission Date: 20111222
  Serious: Yes (Life-Threatening, Other)
  Sender: FDA-Public Use
  Company Number: CA-GENZYME-MOZO-1000551

PATIENT
  Sex: Female
  Weight: 16.85 kg

DRUGS (6)
  1. MOZOBIL [Suspect]
     Indication: HAEMATOPOIETIC STEM CELL MOBILISATION
     Dosage: 240 MCG/KG, ONCE
     Route: 065
     Dates: start: 20110713, end: 20110713
  2. MOZOBIL [Suspect]
     Indication: RHABDOMYOSARCOMA
  3. NEUPOGEN [Concomitant]
     Indication: PRODUCT USED FOR UNKNOWN INDICATION
     Dosage: 240 MCG/KG, BID
     Route: 042
  4. ONDANSETRON [Concomitant]
     Indication: PRODUCT USED FOR UNKNOWN INDICATION
     Dosage: 4 MG, PRN
     Route: 042
  5. CHEMOTHERAPEUTICS NOS [Concomitant]
     Indication: CHEMOTHERAPY
     Route: 065
  6. EMLA [Concomitant]
     Dosage: UNK
     Route: 061

REACTIONS (3)
  - ARTHRITIS [None]
  - DRUG INEFFECTIVE [None]
  - BLOOD STEM CELL HARVEST FAILURE [None]
